FAERS Safety Report 8427095-2 (Version None)
Quarter: 2012Q2

REPORT INFORMATION
  Report Type: 
  Country: None (occurrence: None)
  Receive Date: 20120611
  Receipt Date: 20120531
  Transmission Date: 20120825
  Serious: Yes (Hospitalization)
  Sender: FDA-Public Use
  Company Number: ES-ROCHE-704486

PATIENT
  Sex: Female
  Weight: 49 kg

DRUGS (7)
  1. AVASTIN [Suspect]
     Indication: OVARIAN EPITHELIAL CANCER
     Dosage: DOSAGE FORM: VIALS. LAST DOSE PRIOR TO  SAE: 02 JUNE 2010, DOSE REPORTED AS 367 MG, PERMANENTLY DISC
     Route: 042
     Dates: start: 20100413, end: 20100526
  2. AVASTIN [Suspect]
     Dates: start: 20100603, end: 20110625
  3. PACLITAXEL [Suspect]
     Indication: OVARIAN EPITHELIAL CANCER
     Dosage: FORM VIAL, LAST DOSE PRIOR TO SAE ON 12 MAY 2010
     Route: 042
     Dates: start: 20100414, end: 20100519
  4. CARBOPLATIN [Suspect]
     Dates: start: 20100603, end: 20100625
  5. PACLITAXEL [Suspect]
     Route: 042
     Dates: start: 20100603, end: 20100616
  6. CARBOPLATIN [Suspect]
     Indication: OVARIAN EPITHELIAL CANCER
     Dosage: FORM: VIALS, LAST DOSE PRIOR TO SAE ON 03 JUN 2010.
     Route: 042
     Dates: start: 20100414, end: 20100526
  7. AMILORIDE HCL AND HYDROCHLOROTHIAZIDE [Concomitant]
     Dosage: TDD: 1CAP

REACTIONS (1)
  - OESOPHAGITIS [None]
